FAERS Safety Report 5818075-1 (Version None)
Quarter: 2008Q3

REPORT INFORMATION
  Report Type: 
  Country: None (occurrence: None)
  Receive Date: 20080722
  Receipt Date: 20070830
  Transmission Date: 20090109
  Serious: Yes (Other)
  Sender: FDA-Public Use
  Company Number: US-BAYER-US-2007-032600

PATIENT
  Age: 72 Year
  Sex: Male

DRUGS (1)
  1. MAGNEVIST [Suspect]
     Indication: NUCLEAR MAGNETIC RESONANCE IMAGING BRAIN
     Dosage: UNIT DOSE: 15 ML
     Route: 042
     Dates: start: 20070828, end: 20070828

REACTIONS (4)
  - ABDOMINAL PAIN [None]
  - CHILLS [None]
  - DYSPNOEA [None]
  - RASH ERYTHEMATOUS [None]
